FAERS Safety Report 13668462 (Version 1)
Quarter: 2017Q2

REPORT INFORMATION
  Report Type: Report from Study
  Country: US (occurrence: US)
  Receive Date: 20170620
  Receipt Date: 20170620
  Transmission Date: 20170830
  Serious: Yes (Death, Other)
  Sender: FDA-Public Use
  Company Number: US-ROCHE-1946525

PATIENT

DRUGS (3)
  1. PEGINTERFERON ALFA-2B [Suspect]
     Active Substance: PEGINTERFERON ALFA-2B
     Indication: CHRONIC HEPATITIS C
     Route: 058
  2. RIBAVIRIN. [Suspect]
     Active Substance: RIBAVIRIN
     Indication: CHRONIC HEPATITIS C
     Dosage: 800-1200 MG PER DAY.
     Route: 048
  3. PEG-INTERFERON ALFA 2A [Suspect]
     Active Substance: PEGINTERFERON ALFA-2A
     Indication: CHRONIC HEPATITIS C
     Route: 058

REACTIONS (18)
  - Pneumonia [Unknown]
  - Dysphoria [Unknown]
  - Arthritis bacterial [Unknown]
  - Seizure [Unknown]
  - Depression [Unknown]
  - Abscess [Unknown]
  - Upper respiratory tract infection [Unknown]
  - Anaemia [Unknown]
  - Myocardial infarction [Fatal]
  - Retinopathy [Unknown]
  - Bacteraemia [Unknown]
  - Anger [Unknown]
  - Anxiety [Unknown]
  - Thrombocytopenia [Unknown]
  - Pancytopenia [Unknown]
  - Neutropenia [Unknown]
  - Suicidal ideation [Unknown]
  - Sinusitis [Unknown]
